FAERS Safety Report 8119226-9 (Version None)
Quarter: 2012Q1

REPORT INFORMATION
  Report Type: 
  Country: None (occurrence: None)
  Receive Date: 20120207
  Receipt Date: 20120124
  Transmission Date: 20120608
  Serious: Yes (Other)
  Sender: FDA-Public Use
  Company Number: PHHY2012FR007507

PATIENT
  Sex: Female

DRUGS (4)
  1. CITALOPRAM [Suspect]
     Dosage: 50 MG, DAILY
  2. ABILIFY [Concomitant]
  3. CITALOPRAM [Interacting]
     Dosage: 40 MG, DAILY
     Dates: start: 20120101
  4. CLOZAPINE [Interacting]
     Dosage: 150 MG, DAILY
     Dates: start: 20120101

REACTIONS (6)
  - DRUG INTERACTION [None]
  - FEELING ABNORMAL [None]
  - DISCOMFORT [None]
  - ENURESIS [None]
  - BLADDER SPHINCTER ATONY [None]
  - DELIRIUM [None]
